FAERS Safety Report 5331093-5 (Version None)
Quarter: 2007Q2

REPORT INFORMATION
  Report Type: 
  Country: None (occurrence: None)
  Receive Date: 20070522
  Receipt Date: 20070517
  Transmission Date: 20071010
  Serious: Yes (Hospitalization)
  Sender: FDA-Public Use
  Company Number: JP-BRISTOL-MYERS SQUIBB COMPANY-13736558

PATIENT
  Age: 69 Year
  Sex: Male

DRUGS (2)
  1. BARACLUDE [Suspect]
     Indication: HEPATIC CIRRHOSIS
     Route: 048
     Dates: start: 20070307
  2. URIEF [Concomitant]
     Route: 048
     Dates: start: 20070221

REACTIONS (2)
  - GASTROENTERITIS [None]
  - PERITONITIS BACTERIAL [None]
